FAERS Safety Report 4879427-X (Version None)
Quarter: 2005Q4

REPORT INFORMATION
  Report Type: 
  Country: None (occurrence: None)
  Receive Date: 20051209
  Receipt Date: 20050929
  Transmission Date: 20060501
  Serious: Yes (Other)
  Sender: FDA-Public Use
  Company Number: 2012016

PATIENT
  Age: 42 Year
  Sex: Male

DRUGS (2)
  1. OXYCONTIN [Suspect]
     Indication: BACK PAIN
     Dates: start: 20000925
  2. LIDOCAINE [Concomitant]

REACTIONS (9)
  - ANXIETY [None]
  - BURNING SENSATION [None]
  - DRUG ABUSER [None]
  - DRUG DEPENDENCE [None]
  - DRUG TOLERANCE [None]
  - DRUG WITHDRAWAL SYNDROME [None]
  - EMOTIONAL DISTRESS [None]
  - PAIN [None]
  - PSYCHOMOTOR HYPERACTIVITY [None]
